FAERS Safety Report 4605144-7 (Version None)
Quarter: 2005Q1

REPORT INFORMATION
  Report Type: 
  Country: None (occurrence: None)
  Receive Date: 20050223
  Receipt Date: 20041006
  Transmission Date: 20050727
  Serious: Yes (Other)
  Sender: FDA-Public Use
  Company Number: DSA_25154_2004

PATIENT
  Age: 73 Year
  Sex: Male

DRUGS (3)
  1. DILTIAZEM HCL [Suspect]
     Indication: HEART RATE
     Dosage: 240 MG Q DAY PO
     Route: 048
     Dates: start: 20040901, end: 20040920
  2. ACTONEL [Concomitant]
  3. DIURETIC [Concomitant]

REACTIONS (1)
  - STEVENS-JOHNSON SYNDROME [None]
